FAERS Safety Report 5119946-4 (Version None)
Quarter: 2006Q3

REPORT INFORMATION
  Report Type: 
  Country: None (occurrence: None)
  Receive Date: 20060928
  Receipt Date: 20060921
  Transmission Date: 20061208
  Serious: Yes (Hospitalization, Other)
  Sender: FDA-Public Use
  Company Number: HQWYE016521SEP06

PATIENT
  Age: 85 Year
  Sex: Female

DRUGS (9)
  1. CORDARONE [Suspect]
     Indication: ATRIAL FIBRILLATION
     Dosage: 200 MG TABLET; ORAL; SEE IMAGE
     Route: 048
     Dates: start: 20060422, end: 20060519
  2. CORDARONE [Suspect]
     Indication: ATRIAL FLUTTER
     Dosage: 200 MG TABLET; ORAL; SEE IMAGE
     Route: 048
     Dates: start: 20060422, end: 20060519
  3. CORDARONE [Suspect]
     Indication: ATRIAL FIBRILLATION
     Dosage: 200 MG TABLET; ORAL; SEE IMAGE
     Route: 048
     Dates: start: 20060615, end: 20060709
  4. CORDARONE [Suspect]
     Indication: ATRIAL FLUTTER
     Dosage: 200 MG TABLET; ORAL; SEE IMAGE
     Route: 048
     Dates: start: 20060615, end: 20060709
  5. CORDARONE [Suspect]
     Indication: ATRIAL FIBRILLATION
     Dosage: 200 MG TABLET; ORAL; SEE IMAGE
     Route: 048
     Dates: start: 20060710, end: 20060711
  6. CORDARONE [Suspect]
     Indication: ATRIAL FLUTTER
     Dosage: 200 MG TABLET; ORAL; SEE IMAGE
     Route: 048
     Dates: start: 20060710, end: 20060711
  7. DIGOXIN [Suspect]
     Indication: CARDIAC FAILURE
     Dosage: 0.125 MG TABLET, ORAL;  SEE IMAGE
     Route: 048
     Dates: start: 20060310, end: 20060422
  8. DIGOXIN [Suspect]
     Indication: CARDIAC FAILURE
     Dosage: 0.125 MG TABLET, ORAL;  SEE IMAGE
     Route: 048
     Dates: start: 20060615, end: 20060710
  9. FRAXIPARIN (HEPARIN-FRACTION, CALCIUM SALT) [Concomitant]

REACTIONS (2)
  - ACUTE PULMONARY OEDEMA [None]
  - HEART RATE DECREASED [None]
